FAERS Safety Report 21286192 (Version 1)
Quarter: 2022Q3

REPORT INFORMATION
  Report Type: Spontaneous
  Country: US (occurrence: None)
  Receive Date: 20220901
  Receipt Date: 20220901
  Transmission Date: 20221026
  Serious: Yes (Hospitalization)
  Sender: FDA-Public Use
  Company Number: None

PATIENT
  Age: 67 Year
  Sex: Male

DRUGS (1)
  1. DEFINITY [Suspect]
     Active Substance: PERFLUTREN

REACTIONS (4)
  - Dizziness [None]
  - Staring [None]
  - Unresponsive to stimuli [None]
  - Injection related reaction [None]

NARRATIVE: CASE EVENT DATE: 20220901
